FAERS Safety Report 7292238-3 (Version None)
Quarter: 2011Q1

REPORT INFORMATION
  Report Type: 
  Country: None (occurrence: None)
  Receive Date: 20110215
  Receipt Date: 20110204
  Transmission Date: 20110831
  Serious: No
  Sender: FDA-Public Use
  Company Number: US-BIOGENIDEC-2011BI005264

PATIENT
  Age: 33 Year
  Sex: Male

DRUGS (3)
  1. TYSABRI [Suspect]
     Route: 042
     Dates: start: 20061017, end: 20070207
  2. TYSABRI [Suspect]
     Route: 042
     Dates: start: 20070514, end: 20090326
  3. TYSABRI [Suspect]
     Indication: MULTIPLE SCLEROSIS
     Route: 042
     Dates: start: 20100224

REACTIONS (1)
  - ASTHENIA [None]
